FAERS Safety Report 11602043 (Version 1)
Quarter: 2015Q4

REPORT INFORMATION
  Report Type: Spontaneous
  Country: US (occurrence: US)
  Receive Date: 20151006
  Receipt Date: 20151006
  Transmission Date: 20160304
  Serious: No
  Sender: FDA-Public Use
  Company Number: US-AMGEN-USASP2015056582

PATIENT
  Age: 62 Year
  Sex: Female
  Weight: 61.68 kg

DRUGS (12)
  1. DIAZEPAM. [Concomitant]
     Active Substance: DIAZEPAM
     Dosage: 5 MG, TID
     Route: 048
     Dates: start: 20141016
  2. BIOTENE DRY MOUTH [Concomitant]
     Dosage: UNK UNK, AS NECESSARY
     Dates: start: 20131107
  3. FLUOCINONIDE-E [Concomitant]
     Dosage: 0.05 %,1-2 TIME DAILY, USE MOISTURIZER OVER APPLICATION
     Route: 061
     Dates: start: 20141109
  4. HYDROCODONE BITARTRATE AND ACETAMINOPHEN [Concomitant]
     Active Substance: ACETAMINOPHEN\HYDROCODONE BITARTRATE
     Indication: PAIN
     Dosage: 5-325 MG, Q8H AS NEEDED
     Route: 048
     Dates: start: 20141016
  5. BUTALBITAL, ACETAMINOPHEN, AND CAFFEINE [Concomitant]
     Active Substance: ACETAMINOPHEN\BUTALBITAL\CAFFEINE
     Dosage: 50-325-40 MG, Q6H AS NEEDED
     Route: 048
     Dates: start: 20141109
  6. CALCIUM [Concomitant]
     Active Substance: CALCIUM
     Dosage: 500 3 GUMMIE SUPPLEMENT, QD
     Dates: start: 20141229
  7. LOMOTIL [Concomitant]
     Active Substance: ATROPINE SULFATE\DIPHENOXYLATE HYDROCHLORIDE
     Dosage: UNK UNK, AS NECESSARY
     Dates: start: 20131107
  8. NYSTATIN. [Concomitant]
     Active Substance: NYSTATIN
     Dosage: 100000 UNIT/ML SWISH IN MOUTH AND SPIT 1-2 TEASPOON 3-4 TIMES DAILY
  9. SERTRALINE [Concomitant]
     Active Substance: SERTRALINE HYDROCHLORIDE
     Dosage: 100 MG, QD
     Route: 048
  10. GABAPENTIN. [Concomitant]
     Active Substance: GABAPENTIN
     Dosage: 100 MG, 3 CAP EVERY DAY
     Dates: start: 20150302
  11. PROLIA [Suspect]
     Active Substance: DENOSUMAB
     Indication: OSTEOPOROSIS
     Dosage: 60 MG, UNK
     Route: 058
     Dates: start: 20141229
  12. SUMATRIPTAN. [Concomitant]
     Active Substance: SUMATRIPTAN
     Dosage: 100 MG, AS NECESSARY
     Route: 048
     Dates: start: 20140902

REACTIONS (35)
  - Back pain [Unknown]
  - Tinnitus [Unknown]
  - Balance disorder [Unknown]
  - Ulcer [Not Recovered/Not Resolved]
  - Mass [Unknown]
  - Blood cholesterol increased [Unknown]
  - Pain [Unknown]
  - Dysstasia [Unknown]
  - Abdominal distension [Not Recovered/Not Resolved]
  - Dry throat [Unknown]
  - Head discomfort [Unknown]
  - Chills [Unknown]
  - Tremor [Unknown]
  - Abdominal pain upper [Unknown]
  - Skin disorder [Unknown]
  - Dysphagia [Not Recovered/Not Resolved]
  - Feeling hot [Not Recovered/Not Resolved]
  - Condition aggravated [Unknown]
  - Pain in jaw [Unknown]
  - Blister [Unknown]
  - Rhinorrhoea [Unknown]
  - Groin pain [Unknown]
  - Gait disturbance [Unknown]
  - Ear congestion [Unknown]
  - Rash [Not Recovered/Not Resolved]
  - Influenza like illness [Not Recovered/Not Resolved]
  - Neck mass [Unknown]
  - Adverse drug reaction [Unknown]
  - Arthralgia [Unknown]
  - Chest pain [Unknown]
  - Dizziness [Unknown]
  - Cough [Unknown]
  - Headache [Unknown]
  - Eczema [Unknown]
  - Pain in extremity [Not Recovered/Not Resolved]

NARRATIVE: CASE EVENT DATE: 20141230
